FAERS Safety Report 10006293 (Version 2)
Quarter: 2014Q1

REPORT INFORMATION
  Report Type: Spontaneous
  Country: JP (occurrence: JP)
  Receive Date: 20140313
  Receipt Date: 20140313
  Transmission Date: 20141002
  Serious: Yes (Other)
  Sender: FDA-Public Use
  Company Number: PHHY2013JP155101

PATIENT
  Age: 21 Year
  Sex: Female

DRUGS (8)
  1. CICLOSPORIN [Suspect]
     Indication: IMMUNOSUPPRESSION
  2. PREDNISOLONE [Suspect]
  3. PREDNISOLONE [Suspect]
     Dosage: 10 MG, PER DAY
  4. PREDNISOLONE [Suspect]
     Dosage: 25 MG, PER DAY
  5. PREDNISOLONE [Suspect]
  6. AZATHIOPRINE [Suspect]
  7. METHYLPREDNISOLONE [Suspect]
  8. THIAMAZOLE [Concomitant]
     Indication: HYPERTHYROIDISM

REACTIONS (4)
  - Liver disorder [Unknown]
  - Decreased appetite [Unknown]
  - Insomnia [Unknown]
  - Drug effect incomplete [Unknown]
